FAERS Safety Report 10170874 (Version 1)
Quarter: 2014Q2

REPORT INFORMATION
  Report Type: Spontaneous
  Country: CL (occurrence: None)
  Receive Date: 20140512
  Receipt Date: 20140512
  Transmission Date: 20141212
  Serious: Yes (Death)
  Sender: FDA-Public Use
  Company Number: 2014P1003763

PATIENT
  Age: 18 Year
  Sex: Female
  Weight: 71 kg

DRUGS (3)
  1. AMOXICILLIN [Suspect]
     Indication: WOUND
  2. AMOXICILLIN [Suspect]
     Indication: INJURY
  3. ANTIHISTAMINE [Concomitant]

REACTIONS (18)
  - Nausea [None]
  - Vomiting [None]
  - Dyspnoea [None]
  - Loss of consciousness [None]
  - Rash [None]
  - Oedema [None]
  - Pruritus generalised [None]
  - Cyanosis [None]
  - Ventricular hypertrophy [None]
  - Pleural effusion [None]
  - Pericardial effusion [None]
  - Ascites [None]
  - Myocardial necrosis [None]
  - Drug hypersensitivity [None]
  - Cardiac failure [None]
  - Myocarditis [None]
  - Inflammation [None]
  - Fibrosis [None]
